FAERS Safety Report 8514270-1 (Version None)
Quarter: 2012Q3

REPORT INFORMATION
  Report Type: 
  Country: None (occurrence: None)
  Receive Date: 20120717
  Receipt Date: 20120709
  Transmission Date: 20120928
  Serious: Yes (Hospitalization)
  Sender: FDA-Public Use
  Company Number: FR-PFIZER INC-2012163452

PATIENT
  Age: 58 Year
  Sex: Male

DRUGS (6)
  1. AMOXICILLIN [Concomitant]
     Dosage: UNK
     Dates: start: 20120529
  2. AMOXICILLIN [Concomitant]
     Dosage: UNK
     Route: 048
     Dates: start: 20120526, end: 20120527
  3. PREDNISONE TAB [Concomitant]
     Dosage: UNK
  4. CELEBREX [Concomitant]
     Dosage: UNK
  5. SULFASALAZINE [Suspect]
     Indication: RHEUMATOID ARTHRITIS
     Dosage: UNK
     Route: 048
     Dates: start: 20120501, end: 20120529
  6. LAMALINE [Concomitant]
     Dosage: UNK

REACTIONS (3)
  - CELL DEATH [None]
  - PYREXIA [None]
  - RASH [None]
